FAERS Safety Report 20289207 (Version 3)
Quarter: 2022Q2

REPORT INFORMATION
  Report Type: Spontaneous
  Country: US (occurrence: US)
  Receive Date: 20220104
  Receipt Date: 20220603
  Transmission Date: 20220720
  Serious: Yes (Life-Threatening, Hospitalization, Other)
  Sender: FDA-Public Use
  Company Number: US-CIPLA LTD.-2021US08335

PATIENT

DRUGS (2)
  1. TOPIRAMATE [Suspect]
     Active Substance: TOPIRAMATE
     Indication: Myoclonus
     Dosage: UNK, DECREASE DOSE
     Route: 065
  2. TOPIRAMATE [Suspect]
     Active Substance: TOPIRAMATE
     Dosage: UNK, DECREASE DOSE
     Route: 065

REACTIONS (10)
  - Osmotic demyelination syndrome [Recovering/Resolving]
  - Renal tubular acidosis [Recovered/Resolved]
  - Renal salt-wasting syndrome [Recovered/Resolved]
  - Hemiparesis [Recovering/Resolving]
  - Hyposthenuria [Recovering/Resolving]
  - Hypernatraemia [Recovered/Resolved]
  - Hypokalaemia [Recovered/Resolved]
  - Encephalopathy [Recovering/Resolving]
  - Metabolic acidosis [Recovered/Resolved]
  - Hypotension [Unknown]
